FAERS Safety Report 7905887 (Version 2)
Quarter: 2012Q4

REPORT INFORMATION
  Report Type: 
  Country: FR (occurrence: FR)
  Receive Date: 20110420
  Receipt Date: 20121223
  Transmission Date: 20130627
  Serious: Yes (Hospitalization)
  Sender: FDA-Public Use
  Company Number: PHHY2011FR29463

PATIENT
  Age: 29 Year
  Sex: Female

DRUGS (4)
  1. TEGRETOL [Suspect]
     Indication: GRAND MAL CONVULSION
     Dosage: 400 mg, TID
  2. TEGRETOL [Suspect]
     Dosage: 200 mg, TID
     Route: 048
     Dates: end: 20120816
  3. MICROPAKINE [Suspect]
     Indication: GRAND MAL CONVULSION
     Dosage: 750 mg, BID
     Route: 048
  4. SABRIL [Concomitant]
     Dosage: 500 mg, (3 sachets in the evening)
     Route: 048

REACTIONS (8)
  - Convulsion [Recovered/Resolved]
  - Hyponatraemia [Recovered/Resolved with Sequelae]
  - General physical health deterioration [Recovered/Resolved]
  - Petit mal epilepsy [Recovered/Resolved]
  - Nystagmus [Recovered/Resolved]
  - Urinary incontinence [Recovered/Resolved]
  - Confusional state [Recovered/Resolved]
  - Grand mal convulsion [Unknown]
